FAERS Safety Report 18554490 (Version 4)
Quarter: 2020Q4

REPORT INFORMATION
  Report Type: Report from Study
  Country: DE (occurrence: DE)
  Receive Date: 20201127
  Receipt Date: 20201210
  Transmission Date: 20210114
  Serious: Yes (Hospitalization, Other)
  Sender: FDA-Public Use
  Company Number: DE-BRISTOL-MYERS SQUIBB COMPANY-BMS-2019-067963

PATIENT
  Age: 63 Year
  Sex: Female

DRUGS (25)
  1. CEFUROXIM [CEFUROXIME] [Concomitant]
     Active Substance: CEFUROXIME
     Indication: PROPHYLAXIS
     Dosage: 1000 MILLIGRAM
     Route: 065
     Dates: start: 20190912, end: 20191011
  2. ONDANSETRON [Concomitant]
     Active Substance: ONDANSETRON
     Indication: PROPHYLAXIS
     Dosage: 8 MILLIGRAM
     Route: 065
     Dates: start: 20200309
  3. HYDROCORTISON [HYDROCORTISONE] [Concomitant]
     Indication: PROPHYLAXIS
     Dosage: 30 MILLIGRAM
     Route: 065
     Dates: start: 20200610
  4. METOPROLOL. [Concomitant]
     Active Substance: METOPROLOL
     Indication: CARDIOVASCULAR DISORDER
     Dosage: 47.5 MILLIGRAM
     Route: 065
     Dates: start: 20191011, end: 202006
  5. AMITRIPTYLIN [Concomitant]
     Active Substance: AMITRIPTYLINE
     Indication: PRODUCT USED FOR UNKNOWN INDICATION
     Dosage: 100 MILLIGRAM
     Route: 065
     Dates: start: 198806, end: 20191011
  6. L-THYROXINE [LEVOTHYROXINE] [Concomitant]
     Active Substance: LEVOTHYROXINE
     Indication: PROPHYLAXIS
     Dosage: 50 MICROGRAM
     Route: 065
     Dates: start: 20200219
  7. NIVOLUMAB [Suspect]
     Active Substance: NIVOLUMAB
     Indication: RENAL CELL CARCINOMA
     Dosage: 3 MILLIGRAM/KILOGRAM, Q3WK
     Route: 042
     Dates: start: 20190521, end: 20190730
  8. CALCILAC [CALCIUM LACTATE] [Concomitant]
     Indication: PROPHYLAXIS
     Dosage: 1250 MILLIGRAM
     Route: 065
     Dates: start: 20190827, end: 202006
  9. MUCOFALK [PLANTAGO AFRA SEED HUSK] [Concomitant]
     Active Substance: PLANTAGO AFRA SEED
     Indication: PROPHYLAXIS
     Dosage: UNK
     Route: 065
     Dates: start: 20190827, end: 202006
  10. TORASEMID [Concomitant]
     Active Substance: TORSEMIDE
     Indication: PROPHYLAXIS
     Dosage: 10 MILLIGRAM
     Route: 065
     Dates: start: 20190912, end: 20191011
  11. ZOLPIDEM [Concomitant]
     Active Substance: ZOLPIDEM TARTRATE
     Indication: PROPHYLAXIS
     Dosage: 10 MILLIGRAM
     Route: 065
     Dates: start: 20191018
  12. HYDROMORPHONE [Concomitant]
     Active Substance: HYDROMORPHONE
     Indication: PROPHYLAXIS
     Dosage: 32 MILLIGRAM
     Route: 065
     Dates: start: 20200610
  13. METOPROLOL. [Concomitant]
     Active Substance: METOPROLOL
     Indication: CEREBROVASCULAR DISORDER
     Dosage: 100 MILLIGRAM
     Route: 065
     Dates: start: 20110915, end: 20191011
  14. PANTOPRAZOLE [Concomitant]
     Active Substance: PANTOPRAZOLE
     Indication: PROPHYLAXIS
     Dosage: 40 MILLIGRAM
     Route: 065
     Dates: start: 20190827, end: 202006
  15. IPILIMUMAB [Suspect]
     Active Substance: IPILIMUMAB
     Indication: RENAL CELL CARCINOMA
     Dosage: 1 MILLIGRAM/KILOGRAM, Q3WK
     Route: 042
     Dates: start: 20190521, end: 20190730
  16. FENTANYL TRANSDERMAL SYSTEM [Concomitant]
     Active Substance: FENTANYL
     Indication: MALIGNANT NEOPLASM PROGRESSION
     Dosage: 50 MICROGRAM
     Route: 065
     Dates: start: 20180902, end: 20191011
  17. AMLODIPINE [Concomitant]
     Active Substance: AMLODIPINE BESYLATE
     Indication: PROPHYLAXIS
     Dosage: 5 MILLIGRAM
     Route: 065
     Dates: start: 20200610
  18. GRANISETRON [Concomitant]
     Active Substance: GRANISETRON
     Indication: PROPHYLAXIS
     Dosage: 2 MILLIGRAM
     Route: 065
     Dates: start: 20190912, end: 202006
  19. METAMIZOL [Concomitant]
     Active Substance: METAMIZOLE SODIUM
     Indication: PROPHYLAXIS
     Dosage: UNK
     Route: 065
     Dates: start: 20200610
  20. EFFENTORA [Concomitant]
     Active Substance: FENTANYL CITRATE
     Indication: PROPHYLAXIS
     Dosage: UPTO 200 MILLIGRAM
     Route: 065
     Dates: start: 20200610
  21. AMITRIPTYLIN [Concomitant]
     Active Substance: AMITRIPTYLINE
     Dosage: 25 MILLIGRAM
     Route: 065
     Dates: start: 20191011
  22. LAMICTAL [Concomitant]
     Active Substance: LAMOTRIGINE
     Indication: PRODUCT USED FOR UNKNOWN INDICATION
     Dosage: 1 DOSAGE FORM - 100 TO 200 MG
     Route: 065
     Dates: start: 20180904, end: 20191011
  23. KALINOR [POTASSIUM CHLORIDE] [Concomitant]
     Active Substance: POTASSIUM CHLORIDE
     Indication: PROPHYLAXIS
     Dosage: UNK
     Route: 065
     Dates: start: 20190827, end: 20191011
  24. THIAMAZOL [Concomitant]
     Active Substance: METHIMAZOLE
     Indication: PROPHYLAXIS
     Dosage: 15 MILLIGRAM
     Route: 065
     Dates: start: 20191011, end: 202006
  25. LEVOTHYROXINE. [Concomitant]
     Active Substance: LEVOTHYROXINE
     Indication: PROPHYLAXIS
     Dosage: 50 MICROGRAM
     Route: 065
     Dates: start: 20200219

REACTIONS (14)
  - Hyperhidrosis [Recovered/Resolved]
  - Pyrexia [Recovered/Resolved]
  - Hepatotoxicity [Recovering/Resolving]
  - Abdominal pain upper [Recovered/Resolved]
  - Sepsis [Recovered/Resolved]
  - Hyperthyroidism [Recovered/Resolved]
  - Malignant neoplasm progression [Not Recovered/Not Resolved]
  - Glucocorticoid deficiency [Recovering/Resolving]
  - Atelectasis [Unknown]
  - Microangiopathy [Recovering/Resolving]
  - Diarrhoea [Recovered/Resolved]
  - Asthenia [Recovered/Resolved]
  - Fatigue [Recovered/Resolved]
  - Escherichia urinary tract infection [Unknown]

NARRATIVE: CASE EVENT DATE: 20190628
